FAERS Safety Report 18703819 (Version 1)
Quarter: 2021Q1

REPORT INFORMATION
  Report Type: Spontaneous
  Country: US (occurrence: US)
  Receive Date: 20210106
  Receipt Date: 20210106
  Transmission Date: 20210419
  Serious: Yes (Other)
  Sender: FDA-Public Use
  Company Number: US-LUPIN PHARMACEUTICALS INC.-2020-11335

PATIENT
  Age: 72 Year
  Sex: Female
  Weight: 62 kg

DRUGS (12)
  1. AMIKACIN. [Suspect]
     Active Substance: AMIKACIN
     Dosage: 7 MILLIGRAM, 3 TIMES WEEKLY
     Route: 042
  2. AMIKACIN. [Suspect]
     Active Substance: AMIKACIN
     Dosage: 10 MILLIGRAM, 3 TIMES WEEKLY
     Route: 042
  3. TRAMADOL. [Suspect]
     Active Substance: TRAMADOL
     Indication: PRODUCT USED FOR UNKNOWN INDICATION
     Dosage: UNK
     Route: 065
  4. TOBRAMYCIN. [Suspect]
     Active Substance: TOBRAMYCIN
     Indication: MYCOBACTERIAL INFECTION
     Dosage: 300 MILLIGRAM, EVERY 36 HOURS
     Route: 042
  5. CLARITHROMYCIN. [Suspect]
     Active Substance: CLARITHROMYCIN
     Indication: MYCOBACTERIUM CHELONAE INFECTION
     Dosage: 500 MILLIGRAM, BID
     Route: 048
  6. IMIPENEM AND CILASTATIN [Suspect]
     Active Substance: CILASTATIN SODIUM\IMIPENEM
     Indication: MYCOBACTERIAL INFECTION
     Dosage: 1 GRAM, TID
     Route: 042
  7. TOBRAMYCIN. [Suspect]
     Active Substance: TOBRAMYCIN
     Dosage: 300 MILLIGRAM, EVERY 72 HOURS
     Route: 042
  8. VANCOMYCIN [Suspect]
     Active Substance: VANCOMYCIN
     Indication: ANTIBIOTIC THERAPY
     Dosage: UNK
     Route: 065
  9. CLARITHROMYCIN. [Suspect]
     Active Substance: CLARITHROMYCIN
     Indication: MYCOBACTERIUM ABSCESSUS INFECTION
  10. AMIKACIN. [Suspect]
     Active Substance: AMIKACIN
     Indication: MYCOBACTERIAL INFECTION
     Dosage: UNK, 7?10 MG 3 TIMES WEEKLY
     Route: 042
  11. CIPROFLOXACIN. [Suspect]
     Active Substance: CIPROFLOXACIN
     Indication: PRODUCT USED FOR UNKNOWN INDICATION
     Dosage: UNK
     Route: 065
  12. PIPERACILLIN AND TAZOBACTAM [Suspect]
     Active Substance: PIPERACILLIN SODIUM\TAZOBACTAM SODIUM
     Indication: ANTIBIOTIC THERAPY
     Dosage: UNK
     Route: 042

REACTIONS (9)
  - Nervous system disorder [Unknown]
  - Staphylococcal infection [Not Recovered/Not Resolved]
  - White blood cell count increased [Not Recovered/Not Resolved]
  - Mycobacterium chelonae infection [Not Recovered/Not Resolved]
  - Drug resistance [Unknown]
  - Mental disorder [Not Recovered/Not Resolved]
  - Drug hypersensitivity [Unknown]
  - Fatigue [Not Recovered/Not Resolved]
  - Epilepsy [Unknown]
